FAERS Safety Report 23363772 (Version 4)
Quarter: 2024Q1

REPORT INFORMATION
  Report Type: Report from Study
  Country: JP (occurrence: JP)
  Receive Date: 20240103
  Receipt Date: 20240306
  Transmission Date: 20240409
  Serious: Yes (Hospitalization)
  Sender: FDA-Public Use
  Company Number: JP-ABBVIE-5484629

PATIENT
  Age: 34 Year
  Sex: Female
  Weight: 35 kg

DRUGS (6)
  1. RINVOQ [Suspect]
     Active Substance: UPADACITINIB
     Indication: Crohn^s disease
     Dosage: FORM STRENGTH WAS 45 MILLIGRAM
     Route: 048
     Dates: start: 20231101, end: 20231113
  2. RINVOQ [Suspect]
     Active Substance: UPADACITINIB
     Indication: Crohn^s disease
     Dosage: 15 MILLIGRAM?DRUG END DATE --2023
     Route: 048
     Dates: start: 20231122
  3. RINVOQ [Suspect]
     Active Substance: UPADACITINIB
     Indication: Crohn^s disease
     Dosage: 30 MILLIGRAM
     Route: 048
     Dates: start: 20231114, end: 20231116
  4. RINVOQ [Suspect]
     Active Substance: UPADACITINIB
     Indication: Crohn^s disease
     Dosage: 25.7 MILLIGRAM
     Route: 048
     Dates: start: 20231220
  5. RINVOQ [Suspect]
     Active Substance: UPADACITINIB
     Indication: Crohn^s disease
     Dosage: 22.5 MILLIGRAM?DRUG END DATE -DEC-2023
     Route: 048
     Dates: start: 20231207
  6. RINVOQ [Suspect]
     Active Substance: UPADACITINIB
     Indication: Crohn^s disease
     Dosage: 22.5 MILLIGRAM
     Route: 048
     Dates: start: 20240109, end: 20240117

REACTIONS (4)
  - Abdominal pain [Recovered/Resolved]
  - Crohn^s disease [Unknown]
  - Lymphocyte count decreased [Recovered/Resolved]
  - Frequent bowel movements [Unknown]

NARRATIVE: CASE EVENT DATE: 20231101
